FAERS Safety Report 5169298-9 (Version None)
Quarter: 2006Q4

REPORT INFORMATION
  Report Type: 
  Country: None (occurrence: None)
  Receive Date: 20061201
  Receipt Date: 20061118
  Transmission Date: 20070319
  Serious: No
  Sender: FDA-Public Use
  Company Number: BR-2006-036386

PATIENT
  Age: 51 Year
  Sex: Female

DRUGS (1)
  1. BETAFERON (INTERFERON BETA 1B) [Suspect]
     Indication: MULTIPLE SCLEROSIS
     Dosage: 8 MIU, 3X/WEEK, SUBCUTANEOUS
     Route: 058
     Dates: start: 20050722, end: 20051101

REACTIONS (3)
  - FALL [None]
  - JOINT SPRAIN [None]
  - TUBERCULOSIS [None]
